FAERS Safety Report 7927547-5 (Version None)
Quarter: 2011Q4

REPORT INFORMATION
  Report Type: 
  Country: None (occurrence: None)
  Receive Date: 20111118
  Receipt Date: 20111108
  Transmission Date: 20120403
  Serious: Yes (Hospitalization)
  Sender: FDA-Public Use
  Company Number: US-BAYER-2011-050192

PATIENT
  Age: 49 Year
  Sex: Female
  Weight: 79.819 kg

DRUGS (9)
  1. MONTELUKAST SODIUM [Concomitant]
     Indication: ASTHMA
     Dosage: 10 MG, QD
     Route: 048
     Dates: start: 20010101
  2. METOPROLOL TARTRATE [Concomitant]
     Indication: HYPERTENSION
     Dosage: 50 MG, QD
     Dates: start: 20071001
  3. YAZ [Suspect]
     Indication: MENSTRUATION IRREGULAR
  4. ALBUTEROL [Concomitant]
     Indication: ASTHMA
     Dosage: UNK UNK, PRN
     Dates: start: 20010101
  5. VITAMIN D [Concomitant]
     Dosage: 400 IU, BID
  6. YAZ [Suspect]
     Indication: PREMENSTRUAL SYNDROME
     Dosage: UNK
     Dates: start: 20090101, end: 20090501
  7. OXYBUTYNIN [Concomitant]
     Dosage: 5 MG, BID
     Route: 048
     Dates: start: 20060101
  8. CALCIUM [Concomitant]
     Dosage: 500 MG, UNK
  9. FLUTICASONE PROPIONATE [Concomitant]
     Indication: ASTHMA
     Dosage: UNK UNK, BID
     Dates: start: 20010101

REACTIONS (5)
  - INJURY [None]
  - MUSCLE SPASMS [None]
  - PAIN IN EXTREMITY [None]
  - OEDEMA PERIPHERAL [None]
  - DEEP VEIN THROMBOSIS [None]
